FAERS Safety Report 8816501 (Version 1)
Quarter: 2012Q4

REPORT INFORMATION
  Report Type: Spontaneous
  Country: GB (occurrence: None)
  Receive Date: 20120927
  Receipt Date: 20120927
  Transmission Date: 20130627
  Serious: Yes (Other)
  Sender: FDA-Public Use
  Company Number: 2012GMK003732

PATIENT
  Sex: Male

DRUGS (4)
  1. ROPINIROLE [Suspect]
     Indication: RESTLESS LEG SYNDROME
     Route: 048
     Dates: start: 2010, end: 20120706
  2. FEXOFENADINE (FEXOFENADINE) [Concomitant]
  3. FLUOXFETINE (FLUOXETINE) [Concomitant]
  4. MONTELUKAST [Concomitant]

REACTIONS (3)
  - Compulsions [None]
  - Hypersexuality [None]
  - Speech disorder [None]
